FAERS Safety Report 8129665-8 (Version None)
Quarter: 2012Q1

REPORT INFORMATION
  Report Type: 
  Country: None (occurrence: None)
  Receive Date: 20120210
  Receipt Date: 20120201
  Transmission Date: 20120608
  Serious: Yes (Hospitalization)
  Sender: FDA-Public Use
  Company Number: US-ABBOTT-12P-163-0901225-00

PATIENT
  Sex: Female
  Weight: 87.622 kg

DRUGS (4)
  1. ATENOLOL [Concomitant]
     Indication: HYPERTENSION
  2. ALBUTEROL [Concomitant]
     Indication: ASTHMA
     Dosage: INHALER AS NEEDED
  3. PROTONIX [Concomitant]
     Indication: GASTROOESOPHAGEAL REFLUX DISEASE
  4. HUMIRA [Suspect]
     Indication: CROHN'S DISEASE
     Route: 058
     Dates: start: 20110801, end: 20120101

REACTIONS (7)
  - CROHN'S DISEASE [None]
  - ABDOMINAL PAIN LOWER [None]
  - BACK PAIN [None]
  - GASTROINTESTINAL DISORDER [None]
  - PYREXIA [None]
  - GASTROINTESTINAL INFECTION [None]
  - ABDOMINAL DISTENSION [None]
